FAERS Safety Report 9638574 (Version 2)
Quarter: 2013Q4

REPORT INFORMATION
  Report Type: Spontaneous
  Country: BR (occurrence: BR)
  Receive Date: 20131022
  Receipt Date: 20131022
  Transmission Date: 20140711
  Serious: Yes (Other)
  Sender: FDA-Public Use
  Company Number: BR-BRISTOL-MYERS SQUIBB COMPANY-18826610

PATIENT
  Age: 75 Year
  Sex: Male

DRUGS (1)
  1. KOMBIGLYZE XR [Suspect]
     Indication: DIABETES MELLITUS
     Dosage: 1DF:2.5 MG/1000 MG (SAXAGLIPTIN + METFORMIN) ?INTERRUTPED AND RESTARTED
     Route: 048
     Dates: start: 20130410

REACTIONS (2)
  - Nephrolithiasis [Unknown]
  - Diarrhoea [Unknown]
